FAERS Safety Report 7669406-1 (Version None)
Quarter: 2011Q3

REPORT INFORMATION
  Report Type: 
  Country: None (occurrence: None)
  Receive Date: 20110808
  Receipt Date: 20110801
  Transmission Date: 20111222
  Serious: Yes (Other)
  Sender: FDA-Public Use
  Company Number: DZ-ROCHE-794094

PATIENT

DRUGS (3)
  1. OXALIPLATIN [Suspect]
     Indication: GASTRIC CANCER
     Dosage: ON DAY 1
     Route: 065
  2. EPIRUBICIN [Suspect]
     Indication: GASTRIC CANCER
     Dosage: ON DAY 1
     Route: 065
  3. CAPECITABINE [Suspect]
     Indication: GASTRIC CANCER
     Dosage: FOR 14 DAYS (D1=D21).
     Route: 065

REACTIONS (8)
  - ALOPECIA [None]
  - LEUKOPENIA [None]
  - VOMITING [None]
  - NEUTROPENIA [None]
  - DIARRHOEA [None]
  - PALMAR-PLANTAR ERYTHRODYSAESTHESIA SYNDROME [None]
  - MUCOSAL INFLAMMATION [None]
  - ANAEMIA [None]
